FAERS Safety Report 19373040 (Version 1)
Quarter: 2021Q2

REPORT INFORMATION
  Report Type: Spontaneous
  Country: US (occurrence: US)
  Receive Date: 20210604
  Receipt Date: 20210604
  Transmission Date: 20210717
  Serious: No
  Sender: FDA-Public Use
  Company Number: US-BAYER-2021-152534

PATIENT
  Age: 13 Year
  Sex: Male

DRUGS (1)
  1. CLARITIN?D 24 HOUR [Suspect]
     Active Substance: LORATADINE\PSEUDOEPHEDRINE SULFATE
     Dosage: 4 DF
     Route: 048
     Dates: start: 20210306, end: 20210306

REACTIONS (2)
  - Wrong technique in product usage process [Not Recovered/Not Resolved]
  - Extra dose administered [Not Recovered/Not Resolved]

NARRATIVE: CASE EVENT DATE: 20210306
